FAERS Safety Report 9799482 (Version 1)
Quarter: 2014Q1

REPORT INFORMATION
  Report Type: Spontaneous
  Country: JP (occurrence: JP)
  Receive Date: 20140106
  Receipt Date: 20140106
  Transmission Date: 20141002
  Serious: Yes (Other)
  Sender: FDA-Public Use
  Company Number: JP-TEVA-453560ISR

PATIENT
  Age: 8 Decade
  Sex: Female

DRUGS (5)
  1. LOSARTAN [Suspect]
     Indication: HYPERTENSION
     Dosage: 50MG
  2. REBAMIPIDE [Concomitant]
     Route: 065
  3. URSODEOXYCHOLIC ACID [Concomitant]
     Route: 065
  4. BENFOTIAMINE [Concomitant]
     Route: 065
  5. PROPRANOLOL [Concomitant]
     Route: 065

REACTIONS (3)
  - Hyponatraemia [Recovered/Resolved]
  - Depressed level of consciousness [Recovering/Resolving]
  - Product substitution issue [Unknown]
